FAERS Safety Report 6083512-7 (Version None)
Quarter: 2009Q1

REPORT INFORMATION
  Report Type: 
  Country: None (occurrence: None)
  Receive Date: 20090217
  Receipt Date: 20090203
  Transmission Date: 20090719
  Serious: Yes (Hospitalization)
  Sender: FDA-Public Use
  Company Number: 430007K09USA

PATIENT
  Age: 34 Year
  Sex: Female
  Weight: 86 kg

DRUGS (6)
  1. NOVANTRONE [Suspect]
     Indication: MULTIPLE SCLEROSIS
     Dosage: ONCE, INTRAVENOUS
     Route: 042
     Dates: start: 20061101, end: 20061101
  2. HYDROCODONE (HYDROCODONE) [Concomitant]
  3. MECLIZINE [Concomitant]
  4. TIZANIDINE HCL [Concomitant]
  5. DEPAKOTE [Concomitant]
  6. WELLBURTIN (BUPROPION HYDROCHLORIDE) [Concomitant]

REACTIONS (4)
  - CHOKING [None]
  - PULMONARY EMBOLISM [None]
  - PULMONARY OEDEMA [None]
  - VOMITING [None]
